FAERS Safety Report 11291449 (Version 1)
Quarter: 2015Q3

REPORT INFORMATION
  Report Type: Spontaneous
  Country: US (occurrence: US)
  Receive Date: 20150722
  Receipt Date: 20150722
  Transmission Date: 20151125
  Serious: No
  Sender: FDA-Public Use
  Company Number: US-UNITED THERAPEUTICS-UNT-2015-002028

PATIENT
  Age: 71 Year
  Sex: Female
  Weight: 92.97 kg

DRUGS (6)
  1. ASPIRIN                            /00002701/ [Concomitant]
     Active Substance: ASPIRIN
     Indication: PRODUCT USED FOR UNKNOWN INDICATION
  2. REMODULIN [Suspect]
     Active Substance: TREPROSTINIL
     Dosage: 0.002 ?G/KG/MIN, CONTINUING
     Route: 041
     Dates: start: 20150218
  3. ADCIRCA [Concomitant]
     Active Substance: TADALAFIL
     Indication: PRODUCT USED FOR UNKNOWN INDICATION
  4. REMODULIN [Suspect]
     Active Substance: TREPROSTINIL
     Indication: PULMONARY ARTERIAL HYPERTENSION
     Dosage: 0.002 ?G/KG/MIN, CONTINUING
     Route: 041
     Dates: start: 20150116
  5. REMODULIN [Suspect]
     Active Substance: TREPROSTINIL
     Dosage: 0.022 ?G/KG/MIN, UNK
  6. LETAIRIS [Suspect]
     Active Substance: AMBRISENTAN
     Indication: PRODUCT USED FOR UNKNOWN INDICATION
     Dosage: 10 MG, QD
     Route: 065
     Dates: start: 20141219

REACTIONS (9)
  - Injection site haemorrhage [Unknown]
  - Headache [Unknown]
  - Hypertension [Unknown]
  - Nervousness [Unknown]
  - Pain in extremity [Unknown]
  - Thrombosis in device [Unknown]
  - Diarrhoea [Unknown]
  - Swelling face [Unknown]
  - Faeces soft [Unknown]

NARRATIVE: CASE EVENT DATE: 20150219
